FAERS Safety Report 10636744 (Version 1)
Quarter: 2014Q4

REPORT INFORMATION
  Report Type: Spontaneous
  Country: US (occurrence: None)
  Receive Date: 20141204
  Receipt Date: 20141204
  Transmission Date: 20150529
  Serious: No
  Sender: FDA-Public Use
  Company Number: None

PATIENT

DRUGS (1)
  1. A+ATTENTION FOCUS AND LEARNING HERBS FOR KIDS [Suspect]
     Active Substance: HOMEOPATHICS
     Indication: DISTURBANCE IN ATTENTION
     Route: 048

REACTIONS (1)
  - Product label confusion [None]

NARRATIVE: CASE EVENT DATE: 20141202
